FAERS Safety Report 15281742 (Version 2)
Quarter: 2018Q3

REPORT INFORMATION
  Report Type: Spontaneous
  Country: ES (occurrence: ES)
  Receive Date: 20180815
  Receipt Date: 20180821
  Transmission Date: 20181010
  Serious: Yes (Other)
  Sender: FDA-Public Use
  Company Number: PHHY2018ES072068

PATIENT
  Age: 49 Year
  Sex: Female

DRUGS (1)
  1. COSENTYX [Suspect]
     Active Substance: SECUKINUMAB
     Indication: ANKYLOSING SPONDYLITIS
     Dosage: UNK (150 MG / 4 MG)
     Route: 058
     Dates: start: 20161219, end: 20170207

REACTIONS (1)
  - Staphylococcal abscess [Recovered/Resolved with Sequelae]

NARRATIVE: CASE EVENT DATE: 20170309
